FAERS Safety Report 5026084-8 (Version None)
Quarter: 2006Q2

REPORT INFORMATION
  Report Type: 
  Country: None (occurrence: None)
  Receive Date: 20060614
  Receipt Date: 20060202
  Transmission Date: 20061013
  Serious: Yes (Other)
  Sender: FDA-Public Use
  Company Number: PHEH2006US01700

PATIENT
  Age: 86 Year
  Sex: Male

DRUGS (4)
  1. ZOMETA [Suspect]
     Indication: METASTASES TO BONE
     Dosage: 4 MG MONTHLY
     Dates: start: 20040224, end: 20050729
  2. HYDROCORTISONE [Concomitant]
     Indication: PROSTATE CANCER
     Dosage: 25 MG/DAY
  3. TAXOTERE [Concomitant]
     Dates: start: 20050420
  4. KETOCONAZOLE [Concomitant]
     Indication: PROSTATE CANCER
     Dosage: 200 MG, TID
     Dates: start: 20040224, end: 20050331

REACTIONS (7)
  - BONE DEBRIDEMENT [None]
  - ENDODONTIC PROCEDURE [None]
  - HYPERTENSION [None]
  - OSTEOMYELITIS [None]
  - OSTEONECROSIS [None]
  - PAIN [None]
  - TRANSIENT ISCHAEMIC ATTACK [None]
